FAERS Safety Report 7683445-6 (Version None)
Quarter: 2011Q3

REPORT INFORMATION
  Report Type: 
  Country: None (occurrence: None)
  Receive Date: 20110815
  Receipt Date: 20110809
  Transmission Date: 20111222
  Serious: Yes (Death, Other)
  Sender: FDA-Public Use
  Company Number: PHHY2011US71919

PATIENT
  Age: 23 Year
  Sex: Male

DRUGS (7)
  1. DACARBAZINE [Suspect]
     Indication: HODGKIN'S DISEASE
     Dosage: UNK UKN, UNK
  2. IFOSFAMIDE [Suspect]
     Indication: HODGKIN'S DISEASE
     Dosage: UNK UKN, UNK
  3. ETOPOSIDE [Suspect]
     Indication: HODGKIN'S DISEASE
     Dosage: UNK UKN, UNK
  4. DOXORUBICIN HCL [Suspect]
     Indication: HODGKIN'S DISEASE
     Dosage: UNK UKN, UNK
  5. VINBLASTINE SULFATE [Suspect]
     Indication: HODGKIN'S DISEASE
     Dosage: UNK UKN, UNK
  6. BLEOMYCIN [Suspect]
     Indication: HODGKIN'S DISEASE
     Dosage: UNK UKN, UNK
  7. CARBOPLATIN [Suspect]
     Indication: HODGKIN'S DISEASE
     Dosage: UNK UKN, UNK

REACTIONS (5)
  - INTERSTITIAL LUNG DISEASE [None]
  - PULMONARY FIBROSIS [None]
  - DYSPNOEA [None]
  - HYPOXIA [None]
  - PNEUMONITIS [None]
